FAERS Safety Report 20332034 (Version 8)
Quarter: 2022Q1

REPORT INFORMATION
  Report Type: Report from Study
  Country: CH (occurrence: None)
  Receive Date: 20220113
  Receipt Date: 20220309
  Transmission Date: 20220423
  Serious: Yes (Hospitalization)
  Sender: FDA-Public Use
  Company Number: CH-Eisai Medical Research-EC-2021-103124

PATIENT
  Age: 37 Year
  Sex: Female
  Weight: 103.8 kg

DRUGS (25)
  1. LENVATINIB [Suspect]
     Active Substance: LENVATINIB
     Indication: Hepatobiliary cancer
     Route: 048
     Dates: start: 20210817, end: 20211108
  2. LENVATINIB [Suspect]
     Active Substance: LENVATINIB
     Route: 048
     Dates: start: 20211112, end: 20211227
  3. PEMBROLIZUMAB [Suspect]
     Active Substance: PEMBROLIZUMAB
     Indication: Hepatobiliary cancer
     Route: 041
     Dates: start: 20210817, end: 20210928
  4. PEMBROLIZUMAB [Suspect]
     Active Substance: PEMBROLIZUMAB
     Route: 041
     Dates: start: 20211019, end: 20211019
  5. PEMBROLIZUMAB [Suspect]
     Active Substance: PEMBROLIZUMAB
     Route: 041
     Dates: start: 20211119, end: 20211119
  6. PEMBROLIZUMAB [Suspect]
     Active Substance: PEMBROLIZUMAB
     Route: 041
     Dates: start: 20211210, end: 20211210
  7. LISINOPRIL [Concomitant]
     Active Substance: LISINOPRIL
     Dates: start: 201301
  8. CALCIUM\CHOLECALCIFEROL [Concomitant]
     Active Substance: CALCIUM\CHOLECALCIFEROL
     Dates: start: 202011
  9. PANTOPRAZOLE SODIUM [Concomitant]
     Active Substance: PANTOPRAZOLE SODIUM
     Dates: start: 202011
  10. ZOLADEX [Concomitant]
     Active Substance: GOSERELIN ACETATE
     Dates: start: 202012
  11. ELIQUIS [Concomitant]
     Active Substance: APIXABAN
     Dates: start: 202104
  12. FRESUBIN ORIGINAL [Concomitant]
     Dates: start: 20210628
  13. SUPRADYN [MINERALS NOS;VITAMINS NOS] [Concomitant]
     Dates: start: 202106
  14. SODIUM PICOSULFATE [Concomitant]
     Active Substance: SODIUM PICOSULFATE
     Dates: start: 202106
  15. METOCLOPRAMIDE HYDROCHLORIDE [Concomitant]
     Active Substance: METOCLOPRAMIDE HYDROCHLORIDE
     Dates: start: 202106
  16. OXYCODONE HYDROCHLORIDE [Concomitant]
     Active Substance: OXYCODONE HYDROCHLORIDE
     Dates: start: 202106
  17. ONDANSETRON [Concomitant]
     Active Substance: ONDANSETRON
     Dates: start: 202106
  18. MOVICOL [Concomitant]
     Active Substance: POLYETHYLENE GLYCOL 3350\POTASSIUM CHLORIDE\SODIUM BICARBONATE\SODIUM CHLORIDE
     Dates: start: 202106
  19. NALOXONE HYDROCHLORIDE\OXYCODONE HYDROCHLORIDE [Concomitant]
     Active Substance: NALOXONE HYDROCHLORIDE\OXYCODONE HYDROCHLORIDE
     Dates: start: 20210729
  20. ANTIDRY CALM [Concomitant]
     Dates: start: 20210906
  21. XYZAL [Concomitant]
     Active Substance: LEVOCETIRIZINE DIHYDROCHLORIDE
     Dates: start: 20210906
  22. FOSFOMYCIN TROMETHAMINE [Concomitant]
     Active Substance: FOSFOMYCIN TROMETHAMINE
     Dates: start: 20210910
  23. PRURI-MED [Concomitant]
     Dates: start: 20210916
  24. OVIXAN [Concomitant]
     Dates: start: 20210916
  25. KCL HAUSMANN [Concomitant]
     Dates: start: 20210928, end: 20211111

REACTIONS (3)
  - Acute kidney injury [Recovered/Resolved]
  - Hypertensive crisis [Recovered/Resolved]
  - Cholangitis [Not Recovered/Not Resolved]

NARRATIVE: CASE EVENT DATE: 20211109
